FAERS Safety Report 15660601 (Version 1)
Quarter: 2018Q4

REPORT INFORMATION
  Report Type: Spontaneous
  Country: US (occurrence: US)
  Receive Date: 20181127
  Receipt Date: 20181127
  Transmission Date: 20190205
  Serious: Yes (Death)
  Sender: FDA-Public Use
  Company Number: US-ELI_LILLY_AND_COMPANY-US201811012016

PATIENT
  Age: 55 Year
  Sex: Female
  Weight: 43.2 kg

DRUGS (1)
  1. VERZENIO [Suspect]
     Active Substance: ABEMACICLIB
     Indication: BREAST CANCER FEMALE
     Dosage: 50 MG, BID
     Route: 048
     Dates: start: 20180228, end: 20180710

REACTIONS (1)
  - Death [Fatal]
